FAERS Safety Report 16852046 (Version 2)
Quarter: 2019Q4

REPORT INFORMATION
  Report Type: Spontaneous
  Country: ID (occurrence: ID)
  Receive Date: 20190925
  Receipt Date: 20191015
  Transmission Date: 20200122
  Serious: Yes (Death)
  Sender: FDA-Public Use
  Company Number: ID-ASTRAZENECA-2019SF35037

PATIENT
  Sex: Male
  Weight: 80 kg

DRUGS (2)
  1. ASPILET [Concomitant]
     Active Substance: ASPIRIN
  2. BRILINTA [Suspect]
     Active Substance: TICAGRELOR
     Indication: ACUTE CORONARY SYNDROME
     Dosage: 180 MG AS LOADING DOSE- ONCE
     Route: 048

REACTIONS (4)
  - Feeling abnormal [Fatal]
  - Blood pressure diastolic increased [Fatal]
  - Haemorrhagic stroke [Fatal]
  - Seizure [Fatal]
